FAERS Safety Report 13946588 (Version 2)
Quarter: 2017Q3

REPORT INFORMATION
  Report Type: Report from Study
  Country: AR (occurrence: AR)
  Receive Date: 20170907
  Receipt Date: 20170925
  Transmission Date: 20171128
  Serious: Yes (Hospitalization)
  Sender: FDA-Public Use
  Company Number: PHHY2017AR131881

PATIENT
  Age: 64 Year
  Sex: Male

DRUGS (4)
  1. DIOVAN D [Suspect]
     Active Substance: HYDROCHLOROTHIAZIDE\VALSARTAN
     Indication: HYPERTENSION
     Dosage: 1 DF (160/25, UNITS NOT PROVIDED), QD
     Route: 065
     Dates: end: 201708
  2. EXFORGE [Suspect]
     Active Substance: AMLODIPINE BESYLATE\VALSARTAN
     Indication: BLOOD PRESSURE INCREASED
     Dosage: 1 DF (AMLODIPINE 5 AND VALSARTAN 160, UNITS NOT PROVIDED), QD
     Route: 065
  3. XARELTO [Concomitant]
     Active Substance: RIVAROXABAN
     Indication: COAGULOPATHY
     Dosage: 2.5 MG, UNK
     Route: 065
  4. NEBILET [Concomitant]
     Active Substance: NEBIVOLOL
     Indication: PRODUCT USED FOR UNKNOWN INDICATION
     Dosage: 1 DF, IN THE AFTERNOON
     Route: 065

REACTIONS (6)
  - Epistaxis [Recovered/Resolved]
  - Bone pain [Unknown]
  - Rheumatic disorder [Unknown]
  - Blood pressure increased [Recovered/Resolved]
  - Influenza [Recovered/Resolved]
  - Muscle contracture [Unknown]

NARRATIVE: CASE EVENT DATE: 201708
